FAERS Safety Report 4325266-8 (Version None)
Quarter: 2004Q1

REPORT INFORMATION
  Report Type: 
  Country: None (occurrence: None)
  Receive Date: 20040324
  Receipt Date: 20040310
  Transmission Date: 20041129
  Serious: Yes (Death, Hospitalization, Other)
  Sender: FDA-Public Use
  Company Number: US_010972992

PATIENT
  Age: 56 Year
  Sex: Male
  Weight: 45 kg

DRUGS (4)
  1. ONCOVIN [Suspect]
     Indication: LYMPHOMA
     Dosage: 1.4 MG OTHER
     Dates: start: 20000425
  2. CYCLOPHOSPHAMIDE [Concomitant]
  3. DOXORUBICIN HYDROCHLORIDE [Concomitant]
  4. PREDNISOLONE [Concomitant]

REACTIONS (8)
  - ASCITES [None]
  - DUODENAL ULCER PERFORATION [None]
  - LYMPHADENOPATHY [None]
  - METASTASES TO LUNG [None]
  - NECROSIS [None]
  - PANCYTOPENIA [None]
  - PERITONITIS [None]
  - RESPIRATORY FAILURE [None]
